FAERS Safety Report 7676774-3 (Version None)
Quarter: 2011Q3

REPORT INFORMATION
  Report Type: 
  Country: None (occurrence: None)
  Receive Date: 20110811
  Receipt Date: 20110531
  Transmission Date: 20111222
  Serious: Yes (Other)
  Sender: FDA-Public Use
  Company Number: US-CEPHALON-2011004085

PATIENT
  Age: 89 Year
  Sex: Female

DRUGS (1)
  1. PROVIGIL [Suspect]
     Route: 048

REACTIONS (1)
  - CONVULSION [None]
